FAERS Safety Report 15228075 (Version 8)
Quarter: 2021Q2

REPORT INFORMATION
  Report Type: Report from Study
  Country: ES (occurrence: ES)
  Receive Date: 20180801
  Receipt Date: 20210521
  Transmission Date: 20210716
  Serious: Yes (Hospitalization)
  Sender: FDA-Public Use
  Company Number: ES-BRISTOL-MYERS SQUIBB COMPANY-BMS-2018-070488

PATIENT
  Age: 83 Year
  Sex: Male
  Weight: 80 kg

DRUGS (10)
  1. MOVICOL [Concomitant]
     Active Substance: POLYETHYLENE GLYCOL 3350\POTASSIUM CHLORIDE\SODIUM BICARBONATE\SODIUM CHLORIDE
     Indication: CONSTIPATION PROPHYLAXIS
     Dosage: UNK, QD
     Route: 048
     Dates: start: 20180301, end: 20180314
  2. BISOLTUS [Concomitant]
     Indication: COUGH
     Dosage: 2MG/ML QD
     Route: 048
     Dates: start: 20180301, end: 20180314
  3. MOVICOL [Concomitant]
     Active Substance: POLYETHYLENE GLYCOL 3350\POTASSIUM CHLORIDE\SODIUM BICARBONATE\SODIUM CHLORIDE
     Dosage: UNK
     Route: 048
     Dates: start: 20180618
  4. LEXATIN [BROMAZEPAM] [Concomitant]
     Active Substance: BROMAZEPAM
     Indication: INSOMNIA
     Dosage: UNK
     Route: 048
     Dates: start: 20180410
  5. SPIRIVA [Concomitant]
     Active Substance: TIOTROPIUM BROMIDE MONOHYDRATE
     Indication: CHRONIC OBSTRUCTIVE PULMONARY DISEASE
     Dosage: UNK
     Route: 050
     Dates: start: 20140121
  6. DULOXETINE. [Concomitant]
     Active Substance: DULOXETINE
     Indication: INSOMNIA
     Dosage: UNK
     Route: 048
     Dates: start: 20180410
  7. NIVOLUMAB [Suspect]
     Active Substance: NIVOLUMAB
     Indication: LUNG NEOPLASM MALIGNANT
     Dosage: 240 MILLIGRAM, Q2WK
     Route: 042
     Dates: start: 20180228, end: 20180618
  8. SERETIDE [Concomitant]
     Active Substance: FLUTICASONE PROPIONATE\SALMETEROL XINAFOATE
     Indication: CHRONIC OBSTRUCTIVE PULMONARY DISEASE
     Dosage: UNK
     Route: 050
     Dates: start: 20140221
  9. PREDNISONE. [Concomitant]
     Active Substance: PREDNISONE
     Indication: RHEUMATOID ARTHRITIS
     Dosage: UNK, QD
     Route: 048
     Dates: start: 20151209
  10. OMEPRAZOLE. [Concomitant]
     Active Substance: OMEPRAZOLE
     Indication: GASTROINTESTINAL DISORDER
     Dosage: UNK
     Route: 048
     Dates: start: 2017

REACTIONS (4)
  - Erythema [Recovered/Resolved]
  - Head discomfort [Recovering/Resolving]
  - Stomatitis [Recovered/Resolved]
  - Oral candidiasis [Unknown]

NARRATIVE: CASE EVENT DATE: 20180606
